FAERS Safety Report 4897605-0 (Version None)
Quarter: 2006Q1

REPORT INFORMATION
  Report Type: 
  Country: None (occurrence: None)
  Receive Date: 20060201
  Receipt Date: 20060124
  Transmission Date: 20060701
  Serious: Yes (Other)
  Sender: FDA-Public Use
  Company Number: PHMT2006CA00560

PATIENT
  Age: 35 Year
  Sex: Female

DRUGS (2)
  1. ZELNORM [Suspect]
     Indication: IRRITABLE BOWEL SYNDROME
     Dosage: 6 MG, ONCE/SINGLE
     Route: 048
     Dates: start: 20060123, end: 20060123
  2. LOSEC [Concomitant]

REACTIONS (5)
  - ABDOMINAL PAIN [None]
  - APPENDICITIS [None]
  - DIFFICULTY IN WALKING [None]
  - FATIGUE [None]
  - HYPERSENSITIVITY [None]
